FAERS Safety Report 4968450-2 (Version None)
Quarter: 2006Q2

REPORT INFORMATION
  Report Type: 
  Country: None (occurrence: None)
  Receive Date: 20060410
  Receipt Date: 20060329
  Transmission Date: 20061013
  Serious: Yes (Hospitalization, Disabling)
  Sender: FDA-Public Use
  Company Number: US-MERCK-0603USA04582

PATIENT
  Age: 51 Year
  Sex: Male
  Weight: 111 kg

DRUGS (8)
  1. VIOXX [Suspect]
     Indication: BACK PAIN
     Route: 048
     Dates: start: 20010709, end: 20010723
  2. VIOXX [Suspect]
     Indication: ARTHRALGIA
     Route: 048
     Dates: start: 20010709, end: 20010723
  3. ASPIRIN [Concomitant]
     Indication: PROPHYLAXIS
     Route: 065
  4. ATENOLOL [Concomitant]
     Indication: HEART RATE DECREASED
     Route: 065
  5. ALTACE [Concomitant]
     Indication: HYPERTENSION
     Route: 065
  6. GOLDEN GLOW VITAMIN B6 [Concomitant]
     Indication: HYPERHOMOCYSTEINAEMIA
     Route: 065
  7. FOLIC ACID [Concomitant]
     Indication: HYPERHOMOCYSTEINAEMIA
     Route: 065
  8. ISOTONIX B-12 [Concomitant]
     Indication: HYPERHOMOCYSTEINAEMIA
     Route: 065

REACTIONS (5)
  - ADVERSE EVENT [None]
  - BLOOD CHOLESTEROL [None]
  - DIABETES MELLITUS [None]
  - MYOCARDIAL INFARCTION [None]
  - THYROID DISORDER [None]
